FAERS Safety Report 24569970 (Version 1)
Quarter: 2024Q4

REPORT INFORMATION
  Report Type: Spontaneous
  Country: US (occurrence: US)
  Receive Date: 20241031
  Receipt Date: 20241031
  Transmission Date: 20250115
  Serious: No
  Sender: ROCHE
  Company Number: US-ROCHE-10000117802

PATIENT
  Sex: Female

DRUGS (4)
  1. ACTEMRA ACTPEN [Suspect]
     Active Substance: TOCILIZUMAB
     Indication: Product used for unknown indication
     Route: 058
     Dates: start: 202209
  2. SUTENT [Concomitant]
     Active Substance: SUNITINIB MALATE
  3. SUNITINIB MALATE [Concomitant]
     Active Substance: SUNITINIB MALATE
  4. IMATINIB MESYLATE [Concomitant]
     Active Substance: IMATINIB MESYLATE

REACTIONS (13)
  - Dyspnoea [Unknown]
  - Stomatitis [Unknown]
  - Diarrhoea [Unknown]
  - Joint swelling [Unknown]
  - Dyspepsia [Unknown]
  - Joint swelling [Unknown]
  - Peripheral swelling [Unknown]
  - Back pain [Unknown]
  - Gingival bleeding [Unknown]
  - Toothache [Unknown]
  - Decreased appetite [Unknown]
  - Dysgeusia [Unknown]
  - Oral contusion [Unknown]
